FAERS Safety Report 4347511-5 (Version None)
Quarter: 2004Q2

REPORT INFORMATION
  Report Type: 
  Country: None (occurrence: None)
  Receive Date: 20040421
  Receipt Date: 20040310
  Transmission Date: 20050107
  Serious: Yes (Other)
  Sender: FDA-Public Use
  Company Number: 2004017983

PATIENT
  Age: 45 Year
  Sex: Female

DRUGS (10)
  1. RELPAX [Suspect]
     Indication: MIGRAINE
     Dosage: (PRN), ORAL
     Route: 048
  2. VERAPAMIL [Suspect]
     Indication: ILL-DEFINED DISORDER
  3. CITRUS PARADISI FRUIT JUICE (CITRUS PARADISI FRUIT JUICE) [Suspect]
     Indication: ILL-DEFINED DISORDER
     Dosage: ORAL
     Route: 048
  4. TOPIRAMATE [Concomitant]
  5. GABAPENTIN [Concomitant]
  6. GLUCOSAMINE (GLUCOSAMINE) [Concomitant]
  7. TRAZODONE HCL [Concomitant]
  8. MIDRID (PARACETAMOL, DICHLORALPHENAZONE, ISOMETHEPTENE) [Concomitant]
  9. CONJUGATED ESTROGENS [Concomitant]
  10. EZETIMIBE (EZETIMIBE) [Concomitant]

REACTIONS (6)
  - BLOOD CHOLESTEROL INCREASED [None]
  - BLOOD PRESSURE INCREASED [None]
  - CHEST DISCOMFORT [None]
  - DRUG INTERACTION [None]
  - PALPITATIONS [None]
  - SUPRAVENTRICULAR EXTRASYSTOLES [None]
